FAERS Safety Report 15090116 (Version 1)
Quarter: 2018Q3

REPORT INFORMATION
  Report Type: Spontaneous
  Country: NL (occurrence: NL)
  Receive Date: 20180629
  Receipt Date: 20180629
  Transmission Date: 20181010
  Serious: Yes (Life-Threatening, Hospitalization, Other)
  Sender: FDA-Public Use
  Company Number: NL-AUROBINDO-AUR-APL-2018-032358

PATIENT
  Age: 24 Year
  Sex: Female
  Weight: 87 kg

DRUGS (2)
  1. IBUPROFEN 400MG FILM COATED TABLETS [Suspect]
     Active Substance: IBUPROFEN
     Indication: EXOSTOSIS
     Dosage: 400MG 1 X PER DAY
     Route: 065
     Dates: start: 20180528, end: 20180529
  2. DICLOFENACNATRIUM AUROBINDO 50 MG GASTRO?RESISTANT TABLET [Suspect]
     Active Substance: DICLOFENAC SODIUM
     Indication: EXOSTOSIS
     Dosage: 50MG, ONE?TIME ADMINISTRATION
     Route: 065
     Dates: start: 20180531

REACTIONS (1)
  - Thrombotic thrombocytopenic purpura [Recovering/Resolving]

NARRATIVE: CASE EVENT DATE: 20180602
